FAERS Safety Report 7686135-9 (Version None)
Quarter: 2011Q3

REPORT INFORMATION
  Report Type: 
  Country: None (occurrence: None)
  Receive Date: 20110816
  Receipt Date: 20110808
  Transmission Date: 20111222
  Serious: Yes (Hospitalization)
  Sender: FDA-Public Use
  Company Number: PHHY2011AU66551

PATIENT
  Sex: Male

DRUGS (9)
  1. ROSUVASTATIN [Concomitant]
     Dosage: UNK UKN, UNK
  2. CLOPIDOGREL [Concomitant]
     Dosage: UNK UKN, UNK
  3. FENOFIBRATE [Concomitant]
     Dosage: UNK UKN, UNK
  4. RISPERDAL CONSTA [Concomitant]
     Dosage: UNK UKN, UNK
  5. ASPIRIN [Concomitant]
     Dosage: UNK UKN, UNK
  6. LOPRESSOR [Suspect]
     Dosage: 25 MG, BID
  7. FUROSEMIDE [Concomitant]
     Dosage: UNK UKN, UNK
  8. RAMIPRIL [Concomitant]
     Dosage: UNK UKN, UNK
  9. CALCIUM AND ERGOCALCIFEROL [Concomitant]
     Dosage: UNK UKN, UNK

REACTIONS (1)
  - PSYCHOTIC DISORDER [None]
